FAERS Safety Report 23428731 (Version 5)
Quarter: 2025Q1

REPORT INFORMATION
  Report Type: Report from Study
  Country: DE (occurrence: DE)
  Receive Date: 20240122
  Receipt Date: 20250220
  Transmission Date: 20250408
  Serious: Yes (Other)
  Sender: PFIZER
  Company Number: DE-PFM-2024-00332

PATIENT
  Age: 73 Year
  Sex: Male
  Weight: 73 kg

DRUGS (15)
  1. ENCORAFENIB [Suspect]
     Active Substance: ENCORAFENIB
     Indication: Malignant melanoma
     Dosage: 450 MG, QD (1/DAY)
     Route: 048
     Dates: start: 20220125
  2. BINIMETINIB [Suspect]
     Active Substance: BINIMETINIB
     Indication: Malignant melanoma
     Dosage: 45 MG, BID (2/DAY)
     Route: 048
     Dates: start: 20220125
  3. BISOPROLOL [Concomitant]
     Active Substance: BISOPROLOL
     Route: 065
  4. PICOSULFAT [Concomitant]
     Indication: Constipation
     Route: 065
     Dates: start: 20220308, end: 20220401
  5. FAMOTIDINE [Concomitant]
     Active Substance: FAMOTIDINE
     Indication: Dyspepsia
     Route: 065
     Dates: start: 20220308, end: 20220401
  6. FAMOTIDINE [Concomitant]
     Active Substance: FAMOTIDINE
     Indication: Abdominal pain upper
     Route: 065
     Dates: start: 20221122, end: 2023
  7. ADVANTAN MILK [Concomitant]
     Indication: Rash maculo-papular
     Route: 065
     Dates: start: 20220505, end: 20220520
  8. MESALAMINE [Concomitant]
     Active Substance: MESALAMINE
     Indication: Large intestinal ulcer
     Route: 065
     Dates: start: 20220810, end: 20221128
  9. LAXANS-RATIOPHARM PICO [Concomitant]
     Indication: Constipation
     Route: 065
     Dates: start: 20220830, end: 20220927
  10. CETIRIZINE HYDROCHLORIDE [Concomitant]
     Active Substance: CETIRIZINE HYDROCHLORIDE
     Indication: Pruritus
     Route: 065
     Dates: start: 20220830, end: 20230119
  11. FERRO-SANOL DUODENAL [Concomitant]
     Active Substance: FERROUS GLYCINE SULFATE
     Indication: Blood iron decreased
     Route: 065
     Dates: start: 20221110, end: 20230621
  12. CIMETIDIN [CIMETIDINE HYDROCHLORIDE] [Concomitant]
     Indication: Abdominal pain upper
     Route: 065
     Dates: start: 20221223, end: 2023
  13. BISACODYL [Concomitant]
     Active Substance: BISACODYL
     Indication: Constipation
     Route: 065
     Dates: start: 20230209, end: 202305
  14. METAMIZOL [Concomitant]
     Active Substance: METAMIZOLE SODIUM
     Indication: Fracture
     Route: 065
     Dates: start: 20230223, end: 2023
  15. METAMIZOL [Concomitant]
     Active Substance: METAMIZOLE SODIUM
     Indication: Abdominal pain upper

REACTIONS (4)
  - Second primary malignancy [Recovered/Resolved]
  - Basal cell carcinoma [Recovered/Resolved]
  - Diarrhoea [Recovered/Resolved]
  - Pruritus [Not Recovered/Not Resolved]

NARRATIVE: CASE EVENT DATE: 20230827
